FAERS Safety Report 21615178 (Version 3)
Quarter: 2024Q1

REPORT INFORMATION
  Report Type: Spontaneous
  Country: KE (occurrence: KE)
  Receive Date: 20221118
  Receipt Date: 20240202
  Transmission Date: 20240410
  Serious: Yes (Hospitalization, Other)
  Sender: FDA-Public Use
  Company Number: KE-ViiV Healthcare Limited-KE2022GSK165931

PATIENT

DRUGS (14)
  1. TRIUMEQ [Suspect]
     Active Substance: ABACAVIR SULFATE\DOLUTEGRAVIR SODIUM\LAMIVUDINE
     Indication: HIV infection
     Dosage: UNK
  2. TRIUMEQ [Suspect]
     Active Substance: ABACAVIR SULFATE\DOLUTEGRAVIR SODIUM\LAMIVUDINE
     Dosage: AFTER 1ST DISCHARGE
  3. TRIUMEQ [Suspect]
     Active Substance: ABACAVIR SULFATE\DOLUTEGRAVIR SODIUM\LAMIVUDINE
     Dosage: AFTER 2ND DISCHARGE
  4. LAMIVUDINE [Concomitant]
     Active Substance: LAMIVUDINE
     Indication: HIV infection
     Dosage: UNK
  5. TENOFOVIR DISOPROXIL FUMARATE [Concomitant]
     Active Substance: TENOFOVIR DISOPROXIL FUMARATE
     Indication: HIV infection
     Dosage: UNK
  6. EFAVIRENZ [Concomitant]
     Active Substance: EFAVIRENZ
     Indication: HIV infection
     Dosage: UNK
  7. ARTESUNATE [Concomitant]
     Active Substance: ARTESUNATE
     Indication: Malaria
     Dosage: UNK
  8. ISONIAZID [Concomitant]
     Active Substance: ISONIAZID
     Indication: Tuberculoma of central nervous system
     Dosage: UNK
  9. ISONIAZID [Concomitant]
     Active Substance: ISONIAZID
     Dosage: UNK
  10. RIFAMPIN [Concomitant]
     Active Substance: RIFAMPIN
     Indication: Tuberculoma of central nervous system
     Dosage: UNK
  11. RIFAMPIN [Concomitant]
     Active Substance: RIFAMPIN
     Dosage: UNK
  12. ETHAMBUTOL [Concomitant]
     Active Substance: ETHAMBUTOL HYDROCHLORIDE
     Indication: Tuberculoma of central nervous system
     Dosage: UNK
  13. PYRAZINAMIDE [Concomitant]
     Active Substance: PYRAZINAMIDE
     Indication: Tuberculoma of central nervous system
     Dosage: UNK
  14. DEXAMETHASONE [Concomitant]
     Active Substance: DEXAMETHASONE
     Indication: Tuberculoma of central nervous system
     Dosage: UNK

REACTIONS (39)
  - Hypersensitivity [Recovered/Resolved]
  - Malaise [Recovered/Resolved]
  - Cough [Recovered/Resolved]
  - Pharyngitis [Recovered/Resolved]
  - Oropharyngeal pain [Recovered/Resolved]
  - Chest discomfort [Recovered/Resolved]
  - Myalgia [Recovered/Resolved]
  - Vomiting [Recovered/Resolved]
  - Pyrexia [Recovered/Resolved]
  - Chills [Recovered/Resolved]
  - Decreased appetite [Recovered/Resolved]
  - Nausea [Recovered/Resolved]
  - Headache [Recovered/Resolved]
  - Pharyngeal inflammation [Recovered/Resolved]
  - Stomatitis [Recovered/Resolved]
  - Pain [Recovered/Resolved]
  - Hepatitis viral [Recovered/Resolved]
  - Hepatic function abnormal [Recovered/Resolved]
  - Generalised oedema [Recovered/Resolved]
  - Paraesthesia [Recovered/Resolved]
  - Hyperhidrosis [Recovered/Resolved]
  - Hypotension [Recovered/Resolved]
  - Diarrhoea [Recovered/Resolved]
  - Abdominal pain [Recovered/Resolved]
  - Abdominal discomfort [Recovered/Resolved]
  - Abdominal tenderness [Recovered/Resolved]
  - Nosocomial infection [Recovered/Resolved]
  - Acute kidney injury [Recovered/Resolved]
  - Rash [Recovered/Resolved]
  - Chest pain [Recovered/Resolved]
  - Palpitations [Recovered/Resolved]
  - Tachycardia [Recovered/Resolved]
  - Respiratory alkalosis [Recovered/Resolved]
  - Neuropathy peripheral [Recovered/Resolved]
  - Virologic failure [Recovered/Resolved]
  - Blood HIV RNA increased [Recovered/Resolved]
  - Confusional state [Recovered/Resolved]
  - Self-medication [Unknown]
  - Intentional product misuse [Unknown]
